FAERS Safety Report 7096394-1 (Version None)
Quarter: 2010Q4

REPORT INFORMATION
  Report Type: 
  Country: None (occurrence: None)
  Receive Date: 20101110
  Receipt Date: 20101110
  Transmission Date: 20110411
  Serious: No
  Sender: FDA-Public Use
  Company Number: None

PATIENT

DRUGS (3)
  1. PYRIDOXINE HCL [Suspect]
     Dosage: 600 MGS DAILY 300 MGS
     Dates: start: 20050801, end: 20051211
  2. PYRIDOXINE HCL [Suspect]
     Dosage: 600 MGS DAILY 300 MGS
     Dates: end: 20060401
  3. ZINC [Suspect]
     Dosage: 80 MGS DAILY

REACTIONS (3)
  - ACUTE STRESS DISORDER [None]
  - NEUROPATHY PERIPHERAL [None]
  - PARKINSON'S DISEASE [None]
